FAERS Safety Report 11310705 (Version 1)
Quarter: 2015Q3

REPORT INFORMATION
  Report Type: Spontaneous
  Country: US (occurrence: US)
  Receive Date: 20150725
  Receipt Date: 20150725
  Transmission Date: 20151125
  Serious: Yes (Congenital Anomaly, Other)
  Sender: FDA-Public Use
  Company Number: US-APOTEX-2015AP008060

PATIENT
  Age: 0 Day
  Sex: Female

DRUGS (1)
  1. PAXIL [Suspect]
     Active Substance: PAROXETINE HYDROCHLORIDE
     Indication: PRODUCT USED FOR UNKNOWN INDICATION
     Route: 064

REACTIONS (8)
  - Transposition of the great vessels [Unknown]
  - Premature baby [Unknown]
  - Coarctation of the aorta [Unknown]
  - Foetal exposure during pregnancy [Unknown]
  - Blood bilirubin decreased [Unknown]
  - Patent ductus arteriosus [Unknown]
  - Neonatal respiratory distress syndrome [Unknown]
  - Ventricular septal defect [Unknown]

NARRATIVE: CASE EVENT DATE: 19960430
